FAERS Safety Report 18024719 (Version 1)
Quarter: 2020Q3

REPORT INFORMATION
  Report Type: Spontaneous
  Country: US (occurrence: US)
  Receive Date: 20200714
  Receipt Date: 20200714
  Transmission Date: 20201103
  Serious: Yes (Hospitalization)
  Sender: FDA-Public Use
  Company Number: None

PATIENT
  Age: 76 Year
  Sex: Male

DRUGS (1)
  1. WARFARIN (WARFARIN NA (EXELAN) 1MG TAB) [Suspect]
     Active Substance: WARFARIN SODIUM
     Indication: ATRIAL FIBRILLATION
     Dates: end: 20191226

REACTIONS (11)
  - Anaemia [None]
  - Gastric ulcer [None]
  - Ischaemia [None]
  - Shock haemorrhagic [None]
  - Troponin I increased [None]
  - Blood potassium increased [None]
  - Electrocardiogram abnormal [None]
  - Acute kidney injury [None]
  - International normalised ratio increased [None]
  - Upper gastrointestinal haemorrhage [None]
  - Splenic haematoma [None]

NARRATIVE: CASE EVENT DATE: 20191226
